FAERS Safety Report 7902104-5 (Version None)
Quarter: 2011Q4

REPORT INFORMATION
  Report Type: 
  Country: None (occurrence: None)
  Receive Date: 20111107
  Receipt Date: 20111107
  Transmission Date: 20120403
  Serious: No
  Sender: FDA-Public Use
  Company Number: None

PATIENT
  Age: 64 Year
  Sex: Male
  Weight: 79 kg

DRUGS (2)
  1. CLOPIDOGREL [Suspect]
     Indication: CARDIOVASCULAR DISORDER
     Dosage: 75 MG, EVERY DAY, PO
     Route: 048
     Dates: start: 20051129, end: 20060518
  2. CLOPIDOGREL [Suspect]
     Indication: SURGERY
     Dosage: 75 MG, EVERY DAY, PO
     Route: 048
     Dates: start: 20051129, end: 20060518

REACTIONS (2)
  - RETINAL HAEMORRHAGE [None]
  - BLINDNESS UNILATERAL [None]
